FAERS Safety Report 15988150 (Version 1)
Quarter: 2019Q1

REPORT INFORMATION
  Report Type: Report from Study
  Country: US (occurrence: US)
  Receive Date: 20190221
  Receipt Date: 20190221
  Transmission Date: 20190418
  Serious: Yes (Other)
  Sender: FDA-Public Use
  Company Number: PHHY2019US017232

PATIENT
  Age: 48 Year
  Sex: Female

DRUGS (1)
  1. GILENYA [Suspect]
     Active Substance: FINGOLIMOD HYDROCHLORIDE
     Indication: MULTIPLE SCLEROSIS
     Dosage: UNK, QD
     Route: 048

REACTIONS (7)
  - Blood alkaline phosphatase increased [Unknown]
  - Sphincter of Oddi dysfunction [Unknown]
  - Alanine aminotransferase increased [Unknown]
  - Concomitant disease aggravated [Recovered/Resolved]
  - Fatigue [Unknown]
  - Hepatic enzyme increased [Recovered/Resolved]
  - Photophobia [Unknown]

NARRATIVE: CASE EVENT DATE: 20160628
